FAERS Safety Report 10008942 (Version 1)
Quarter: 2014Q1

REPORT INFORMATION
  Report Type: Report from Study
  Country: BR (occurrence: BR)
  Receive Date: 20140313
  Receipt Date: 20140313
  Transmission Date: 20141002
  Serious: Yes (Death)
  Sender: FDA-Public Use
  Company Number: PHHY2014BR028130

PATIENT
  Age: 70 Year
  Sex: Female

DRUGS (1)
  1. NEOTIAPIM [Suspect]

REACTIONS (1)
  - Swelling [Fatal]
